FAERS Safety Report 9668235 (Version 3)
Quarter: 2013Q4

REPORT INFORMATION
  Report Type: Spontaneous
  Country: US (occurrence: US)
  Receive Date: 20131104
  Receipt Date: 20131129
  Transmission Date: 20140711
  Serious: Yes (Other)
  Sender: FDA-Public Use
  Company Number: CHPA2013US016458

PATIENT
  Age: 32 Year
  Sex: Female
  Weight: 58.96 kg

DRUGS (2)
  1. HABITROL [Suspect]
     Indication: SMOKING CESSATION THERAPY
     Dosage: UNK UNK, ONCE/SINGLE
     Route: 062
     Dates: start: 2007, end: 2007
  2. HABITROL [Suspect]
     Dosage: UNK, UNK
     Route: 062
     Dates: start: 201310

REACTIONS (7)
  - Diabetes mellitus [Unknown]
  - Blood cholesterol increased [Unknown]
  - Low density lipoprotein increased [Unknown]
  - High density lipoprotein decreased [Unknown]
  - Tremor [Recovered/Resolved]
  - Nightmare [Recovered/Resolved]
  - Drug dispensing error [Unknown]
